FAERS Safety Report 12899491 (Version 2)
Quarter: 2016Q4

REPORT INFORMATION
  Report Type: Report from Study
  Country: RU (occurrence: RU)
  Receive Date: 20161101
  Receipt Date: 20161202
  Transmission Date: 20170207
  Serious: Yes (Hospitalization, Other)
  Sender: FDA-Public Use
  Company Number: RU-BRISTOL-MYERS SQUIBB COMPANY-BMS-2016-090286

PATIENT
  Age: 82 Year
  Sex: Female
  Weight: 99 kg

DRUGS (14)
  1. CARVEDILOLUM [Concomitant]
     Indication: CORONARY ARTERY DISEASE
     Dosage: UNK
     Route: 048
     Dates: start: 2006
  2. FUROSEMIDUM                        /00032601/ [Concomitant]
     Indication: CARDIAC FAILURE CHRONIC
     Dosage: UNK
     Route: 048
     Dates: start: 2006
  3. LOZAP                              /01121602/ [Concomitant]
     Active Substance: LOSARTAN
     Indication: ESSENTIAL HYPERTENSION
     Dosage: UNK
     Route: 048
     Dates: start: 2006
  4. CIPROFLOXACINUM [Concomitant]
     Indication: CHRONIC KIDNEY DISEASE
     Route: 065
  5. CARVEDILOLUM [Concomitant]
     Indication: CARDIAC FAILURE CHRONIC
     Route: 065
  6. EUPHYLLIN                          /00003701/ [Concomitant]
     Indication: CHRONIC KIDNEY DISEASE
     Route: 065
  7. APIXABAN [Suspect]
     Active Substance: APIXABAN
     Indication: CEREBROVASCULAR ACCIDENT PROPHYLAXIS
     Dosage: 2.5 MG, BID
     Route: 048
     Dates: start: 20151027, end: 20161021
  8. APIXABAN [Suspect]
     Active Substance: APIXABAN
     Indication: PRODUCT USED FOR UNKNOWN INDICATION
     Dosage: 2.5 MG, UNK
     Route: 048
     Dates: start: 20161110
  9. LOZAP                              /01121602/ [Concomitant]
     Active Substance: LOSARTAN
     Indication: CARDIAC FAILURE CHRONIC
     Route: 065
  10. INSULIN [Concomitant]
     Active Substance: INSULIN NOS
     Indication: MUSCULAR WEAKNESS
     Dosage: UNK
     Route: 058
     Dates: start: 1996
  11. EUPHYLLIN                          /00003701/ [Concomitant]
     Indication: HYPERKALAEMIA
     Dosage: UNK
     Route: 042
     Dates: start: 20161010
  12. INSULIN [Concomitant]
     Active Substance: INSULIN NOS
     Indication: DIABETES MELLITUS
     Route: 065
  13. KALYMIN                            /00221802/ [Concomitant]
     Indication: MUSCULAR WEAKNESS
     Dosage: UNK
     Route: 048
     Dates: start: 2000
  14. CIPROFLOXACINUM [Concomitant]
     Indication: PYELONEPHRITIS
     Dosage: UNK
     Route: 048
     Dates: start: 20161010, end: 20161018

REACTIONS (4)
  - Femoral neck fracture [Recovered/Resolved]
  - Orthopaedic procedure [Unknown]
  - Hyperkalaemia [Unknown]
  - Fall [Recovered/Resolved]

NARRATIVE: CASE EVENT DATE: 20161010
